FAERS Safety Report 14685753 (Version 2)
Quarter: 2021Q2

REPORT INFORMATION
  Report Type: Spontaneous
  Country: US (occurrence: US)
  Receive Date: 20180327
  Receipt Date: 20210506
  Transmission Date: 20210716
  Serious: No
  Sender: FDA-Public Use
  Company Number: US-ALLERGAN-1815915US

PATIENT
  Sex: Female

DRUGS (1)
  1. LEVONORGESTREL UNK [Suspect]
     Active Substance: LEVONORGESTREL
     Indication: CONTRACEPTION
     Dosage: 52 MG, SINGLE
     Route: 015

REACTIONS (2)
  - Pregnancy [Unknown]
  - Drug ineffective [Unknown]
